FAERS Safety Report 5976710-1 (Version None)
Quarter: 2008Q4

REPORT INFORMATION
  Report Type: 
  Country: None (occurrence: None)
  Receive Date: 20081203
  Receipt Date: 20081121
  Transmission Date: 20090506
  Serious: Yes (Death)
  Sender: FDA-Public Use
  Company Number: JP-RANBAXY-2008RR-19509

PATIENT

DRUGS (3)
  1. ATENOLOL [Suspect]
     Indication: INTENTIONAL OVERDOSE
     Dosage: 300 MG, UNK
     Route: 048
  2. PILSICAINIDE [Suspect]
     Indication: INTENTIONAL OVERDOSE
     Dosage: 300 MG, UNK
     Route: 048
  3. ASPIRIN [Concomitant]

REACTIONS (2)
  - ARRHYTHMIA [None]
  - OVERDOSE [None]
